FAERS Safety Report 7900371 (Version 4)
Quarter: 2012Q4

REPORT INFORMATION
  Report Type: 
  Country: GB (occurrence: GB)
  Receive Date: 20110415
  Receipt Date: 20121031
  Transmission Date: 20130627
  Serious: Yes (Hospitalization, Other)
  Sender: FDA-Public Use
  Company Number: GB-RANBAXY-2011R1-43496

PATIENT
  Age: 50 Year
  Sex: Female

DRUGS (2)
  1. ACETAMINOPHEN [Suspect]
     Indication: STAPHYLOCOCCAL SEPSIS
     Dosage: 4 g daily
     Route: 065
  2. FLUCLOXACILLIN [Interacting]
     Indication: STAPHYLOCOCCAL SEPSIS
     Dosage: 8 g daily
     Route: 042

REACTIONS (2)
  - Drug interaction [Recovered/Resolved]
  - Metabolic acidosis [Recovered/Resolved]
